FAERS Safety Report 4667330-X (Version None)
Quarter: 2005Q2

REPORT INFORMATION
  Report Type: 
  Country: None (occurrence: None)
  Receive Date: 20050520
  Receipt Date: 20041012
  Transmission Date: 20051028
  Serious: Yes (Other)
  Sender: FDA-Public Use
  Company Number: PHEH2004US10974

PATIENT
  Age: 55 Year
  Sex: Male

DRUGS (10)
  1. WARFARIN SODIUM [Concomitant]
  2. DEXAMETHASONE [Concomitant]
     Dosage: 40 MG, QD
     Dates: start: 20031001
  3. DEXAMETHASONE [Concomitant]
     Dosage: 10 MG, QD
     Dates: start: 20030904
  4. DEXAMETHASONE [Concomitant]
     Dosage: 20 MG QD X 4 DAYS EVERY 4 WEEKS UNTIL AUG 03
     Dates: start: 20030710, end: 20030801
  5. DEXAMETHASONE [Concomitant]
     Dosage: 40 MG QD FOR 4 DAYS EVERY 4 WEEKS
     Dates: start: 20030201, end: 20030601
  6. THALIDOMIDE [Concomitant]
     Dosage: 200 MG, QD
     Dates: start: 20041012
  7. THALIDOMIDE [Concomitant]
     Dosage: 100 MG, QD
     Dates: start: 20031201, end: 20041001
  8. THALIDOMIDE [Concomitant]
     Dosage: 150 MG, QD
     Dates: start: 20031001, end: 20031101
  9. THALIDOMIDE [Concomitant]
     Dosage: 200 MG, QD
     Dates: start: 20030217, end: 20030901
  10. ZOMETA [Suspect]
     Indication: MULTIPLE MYELOMA
     Dosage: 4 MG, QMO
     Dates: start: 20030821, end: 20041007

REACTIONS (5)
  - BONE DEBRIDEMENT [None]
  - BONE DISORDER [None]
  - ENDODONTIC PROCEDURE [None]
  - JAW DISORDER [None]
  - OSTEONECROSIS [None]
